FAERS Safety Report 20983214 (Version 1)
Quarter: 2022Q2

REPORT INFORMATION
  Report Type: Spontaneous
  Country: KZ (occurrence: KZ)
  Receive Date: 20220620
  Receipt Date: 20220620
  Transmission Date: 20220721
  Serious: Yes (Other)
  Sender: FDA-Public Use
  Company Number: KZ-TAKEDA-2022TUS040784

PATIENT
  Age: 44 Year
  Sex: Female

DRUGS (2)
  1. ENTYVIO [Suspect]
     Active Substance: VEDOLIZUMAB
     Indication: Crohn^s disease
     Dosage: UNK
     Route: 065
     Dates: start: 20201224, end: 20220210
  2. ENTYVIO [Suspect]
     Active Substance: VEDOLIZUMAB
     Indication: Colectomy

REACTIONS (2)
  - Pulmonary tuberculosis [Unknown]
  - Diarrhoea [Unknown]
